FAERS Safety Report 9525413 (Version 1)
Quarter: 2013Q1

REPORT INFORMATION
  Report Type: Spontaneous
  Country: US (occurrence: None)
  Receive Date: 20130305
  Receipt Date: 20130305
  Transmission Date: 20140127
  Serious: Yes (Other)
  Sender: FDA-Public Use
  Company Number: 163-21880-12030947

PATIENT
  Age: 65 Year
  Sex: Male

DRUGS (3)
  1. REVLIMID [Suspect]
     Indication: PLASMA CELL MYELOMA
     Dosage: 15 MG, 1 IN 1 D, PO
     Route: 048
     Dates: start: 201104
  2. PREDNISONE (PREDNISONE) [Concomitant]
  3. DOXYCYCLINE (DOXYCYCLINE) [Concomitant]

REACTIONS (2)
  - Pulmonary oedema [None]
  - Oedema [None]
